FAERS Safety Report 18118612 (Version 3)
Quarter: 2020Q4

REPORT INFORMATION
  Report Type: Spontaneous
  Country: US (occurrence: US)
  Receive Date: 20200806
  Receipt Date: 20201012
  Transmission Date: 20210113
  Serious: Yes (Other)
  Sender: FDA-Public Use
  Company Number: US-PFIZER INC-2020296368

PATIENT
  Age: 60 Year
  Sex: Female

DRUGS (1)
  1. XELJANZ [Suspect]
     Active Substance: TOFACITINIB CITRATE
     Dosage: 5 MG
     Dates: start: 202007, end: 2020

REACTIONS (4)
  - Intervertebral disc protrusion [Unknown]
  - Skin lesion [Unknown]
  - Pain [Unknown]
  - Sciatica [Unknown]

NARRATIVE: CASE EVENT DATE: 2020
